FAERS Safety Report 26143140 (Version 1)
Quarter: 2025Q4

REPORT INFORMATION
  Report Type: Spontaneous
  Country: US (occurrence: US)
  Receive Date: 20251211
  Receipt Date: 20251211
  Transmission Date: 20260117
  Serious: Yes (Other)
  Sender: BIONPHARMA INC.
  Company Number: US-Bion-015334

PATIENT
  Age: 86 Year
  Sex: Female

DRUGS (2)
  1. LOPERAMIDE HYDROCHLORIDE [Suspect]
     Active Substance: LOPERAMIDE HYDROCHLORIDE
     Indication: Diarrhoea
     Dosage: 1 SOFTGEL SOMETIMES UP TO 2 SOFTGELS
     Route: 048
  2. LOPERAMIDE HYDROCHLORIDE [Suspect]
     Active Substance: LOPERAMIDE HYDROCHLORIDE
     Indication: Abdominal pain upper
     Dosage: 1 SOFTGEL SOMETIMES UP TO 2 SOFTGELS
     Route: 048

REACTIONS (3)
  - Foreign body in throat [Unknown]
  - Sensation of foreign body [Unknown]
  - Throat irritation [Recovering/Resolving]

NARRATIVE: CASE EVENT DATE: 20251202
